FAERS Safety Report 5630228-4 (Version None)
Quarter: 2008Q1

REPORT INFORMATION
  Report Type: 
  Country: None (occurrence: None)
  Receive Date: 20080215
  Receipt Date: 20071120
  Transmission Date: 20080703
  Serious: Yes (Hospitalization)
  Sender: FDA-Public Use
  Company Number: 07-501

PATIENT
  Age: 56 Year
  Sex: Male
  Weight: 69.8539 kg

DRUGS (5)
  1. ALEVE LIQUID GELS,        220 MG, [Suspect]
     Indication: MUSCULOSKELETAL PAIN
     Dosage: 440 MG, DAILY, ORAL; DAILY, ORAL
     Route: 048
     Dates: start: 20071113, end: 20071113
  2. ALEVE LIQUID GELS,        220 MG, [Suspect]
     Indication: MUSCULOSKELETAL PAIN
     Dosage: 440 MG, DAILY, ORAL; DAILY, ORAL
     Route: 048
     Dates: start: 20071119, end: 20071119
  3. GENERIC ENTERIC ASPIRIN [Concomitant]
  4. EYE VITAMIN [Concomitant]
  5. SIMVASTATIN [Concomitant]

REACTIONS (8)
  - ALTERED STATE OF CONSCIOUSNESS [None]
  - AMNESIA [None]
  - BLOOD PRESSURE DECREASED [None]
  - CYANOSIS [None]
  - DROOLING [None]
  - FALL [None]
  - HYPERSENSITIVITY [None]
  - POSTURE ABNORMAL [None]
